FAERS Safety Report 21011733 (Version 1)
Quarter: 2022Q2

REPORT INFORMATION
  Report Type: Spontaneous
  Country: US (occurrence: None)
  Receive Date: 20220624
  Receipt Date: 20220624
  Transmission Date: 20220721
  Serious: Yes (Hospitalization)
  Sender: FDA-Public Use
  Company Number: None

PATIENT
  Sex: Female

DRUGS (1)
  1. RETACRIT [Suspect]
     Active Substance: EPOETIN ALFA-EPBX
     Indication: Juvenile idiopathic arthritis
     Dosage: 1 ML WEEKLY SUB-Q?
     Route: 058
     Dates: start: 202205

REACTIONS (2)
  - Hospitalisation [None]
  - Emergency care [None]
